FAERS Safety Report 4913531-2 (Version None)
Quarter: 2006Q1

REPORT INFORMATION
  Report Type: 
  Country: None (occurrence: None)
  Receive Date: 20060210
  Receipt Date: 20060126
  Transmission Date: 20060701
  Serious: Yes (Other)
  Sender: FDA-Public Use
  Company Number: PHBS2006IT01728

PATIENT
  Age: 73 Year
  Sex: Female

DRUGS (2)
  1. VISUDYNE [Suspect]
     Indication: MACULAR DEGENERATION
     Dosage: 6 MG/M^2 ONCE IV
     Route: 042
  2. TRIAMCINOLONE ACERTONIDE [Suspect]
     Indication: MACULAR DEGENERATION
     Dosage: 25 MG DAILY EY

REACTIONS (1)
  - INTRAOCULAR PRESSURE INCREASED [None]
